FAERS Safety Report 7796588-3 (Version None)
Quarter: 2011Q3

REPORT INFORMATION
  Report Type: 
  Country: None (occurrence: None)
  Receive Date: 20110930
  Receipt Date: 20110922
  Transmission Date: 20111222
  Serious: Yes (Death)
  Sender: FDA-Public Use
  Company Number: AMAG201100198

PATIENT
  Age: 69 Year
  Sex: Female
  Weight: 72 kg

DRUGS (12)
  1. AMLODIPINE (AMLODIPINE MALEATE) [Concomitant]
  2. FERAHEME [Suspect]
     Indication: IRON DEFICIENCY ANAEMIA
     Dosage: 510 MG, SINGLE; INTRAVENOUS
     Route: 042
     Dates: start: 20110902, end: 20110902
  3. CALCITRIOL [Concomitant]
  4. HYDRALAZINE HCL [Concomitant]
  5. VITAMIN D [Concomitant]
  6. ISOSORBIDE DINITRATE [Concomitant]
  7. SODIUM BICARBONATE [Concomitant]
  8. OXYGEN [Concomitant]
  9. CLONIDINE [Concomitant]
  10. ASPIRIN [Concomitant]
  11. LASIX [Concomitant]
  12. METOPROLOL TARTRATE [Concomitant]

REACTIONS (9)
  - PULSE ABSENT [None]
  - SERUM FERRITIN INCREASED [None]
  - ANAPHYLACTIC REACTION [None]
  - DEPRESSED LEVEL OF CONSCIOUSNESS [None]
  - DRUG INEFFECTIVE [None]
  - UNRESPONSIVE TO STIMULI [None]
  - RESPIRATORY ARREST [None]
  - HAEMOGLOBIN DECREASED [None]
  - BLOOD POTASSIUM DECREASED [None]
